FAERS Safety Report 21583859 (Version 1)
Quarter: 2022Q4

REPORT INFORMATION
  Report Type: Report from Study
  Country: US (occurrence: US)
  Receive Date: 20221111
  Receipt Date: 20221111
  Transmission Date: 20230113
  Serious: Yes (Other)
  Sender: FDA-Public Use
  Company Number: US-ABBVIE-4195415

PATIENT
  Sex: Female

DRUGS (2)
  1. RINVOQ [Suspect]
     Active Substance: UPADACITINIB
     Indication: Rheumatoid arthritis
     Dosage: FORM STRENGTH - 15 MG?DRUG END DATE - 2022
     Route: 048
     Dates: start: 202206
  2. RINVOQ [Suspect]
     Active Substance: UPADACITINIB
     Indication: Rheumatoid arthritis
     Dosage: FORM STRENGTH - 15 MG
     Route: 048
     Dates: start: 2022

REACTIONS (15)
  - Fall [Unknown]
  - Influenza virus test positive [Unknown]
  - Gait disturbance [Unknown]
  - Inflammation [Recovering/Resolving]
  - Grip strength decreased [Unknown]
  - Arthralgia [Unknown]
  - Loss of personal independence in daily activities [Unknown]
  - Pain [Recovering/Resolving]
  - Mobility decreased [Unknown]
  - COVID-19 [Unknown]
  - Immunodeficiency [Unknown]
  - Dysstasia [Unknown]
  - Musculoskeletal stiffness [Unknown]
  - Swelling [Recovering/Resolving]
  - Insomnia [Unknown]

NARRATIVE: CASE EVENT DATE: 20220101
